FAERS Safety Report 5541636-4 (Version None)
Quarter: 2007Q4

REPORT INFORMATION
  Report Type: 
  Country: None (occurrence: None)
  Receive Date: 20071210
  Receipt Date: 20071206
  Transmission Date: 20080405
  Serious: Yes (Disabling)
  Sender: FDA-Public Use
  Company Number: A0697599A

PATIENT
  Age: 30 Year
  Sex: Female

DRUGS (1)
  1. ALLI [Suspect]
     Route: 048
     Dates: start: 20071201, end: 20071202

REACTIONS (16)
  - ASTHENIA [None]
  - COLD SWEAT [None]
  - DEFAECATION URGENCY [None]
  - DIARRHOEA [None]
  - FAECAL INCONTINENCE [None]
  - FAECAL VOLUME INCREASED [None]
  - FATIGUE [None]
  - FEELING ABNORMAL [None]
  - FEELING OF BODY TEMPERATURE CHANGE [None]
  - FLATULENCE [None]
  - FREQUENT BOWEL MOVEMENTS [None]
  - HEADACHE [None]
  - INFLUENZA [None]
  - LETHARGY [None]
  - MUSCULOSKELETAL PAIN [None]
  - RECTAL DISCHARGE [None]
